FAERS Safety Report 19109899 (Version 2)
Quarter: 2021Q3

REPORT INFORMATION
  Report Type: Spontaneous
  Country: JP (occurrence: JP)
  Receive Date: 20210409
  Receipt Date: 20210709
  Transmission Date: 20211014
  Serious: Yes (Other)
  Sender: FDA-Public Use
  Company Number: JP-BRISTOL-MYERS SQUIBB COMPANY-BMS-2021-033843

PATIENT

DRUGS (2)
  1. EMPLICITI [Suspect]
     Active Substance: ELOTUZUMAB
     Indication: PLASMA CELL MYELOMA
     Dosage: 10 MILLIGRAM/KILOGRAM, QWK
     Route: 041
  2. LENALIDOMIDE [Suspect]
     Active Substance: LENALIDOMIDE
     Indication: PLASMA CELL MYELOMA
     Dosage: 25 MILLIGRAM, ONE TIME DOSE, 21 TIMES A MONTH
     Route: 048

REACTIONS (7)
  - Hepatic function abnormal [Unknown]
  - Neutrophil count decreased [Unknown]
  - Renal impairment [Unknown]
  - White blood cell count decreased [Unknown]
  - Anaemia [Unknown]
  - Infection [Unknown]
  - Platelet count decreased [Unknown]
